FAERS Safety Report 8119769 (Version 5)
Quarter: 2012Q4

REPORT INFORMATION
  Report Type: Report from Study
  Country: DE (occurrence: DE)
  Receive Date: 20110902
  Receipt Date: 20121115
  Transmission Date: 20130627
  Serious: Yes (Hospitalization, Other)
  Sender: FDA-Public Use
  Company Number: DE-UCBSA-040205

PATIENT
  Age: 71 Year

DRUGS (3)
  1. NEUPRO [Suspect]
     Indication: PARKINSON^S DISEASE
     Dosage: 6 MG/24 HOUR
     Dates: end: 201106
  2. LEVODOPA [Concomitant]
     Indication: PARKINSON^S DISEASE
     Dosage: 3X100/25 MG; 300 MG
  3. LEVODOPA [Concomitant]
     Indication: PARKINSON^S DISEASE
     Dosage: 200 MG; 200/250 MG

REACTIONS (1)
  - Pericarditis [Recovered/Resolved]
